FAERS Safety Report 10149043 (Version 1)
Quarter: 2014Q2

REPORT INFORMATION
  Report Type: Spontaneous
  Country: US (occurrence: None)
  Receive Date: 20140430
  Receipt Date: 20140430
  Transmission Date: 20141212
  Serious: No
  Sender: FDA-Public Use
  Company Number: None

PATIENT
  Age: 34 Year
  Sex: Female

DRUGS (4)
  1. TYSABRI [Suspect]
     Dosage: INFUSION INTRAVENOULSLY PER PRESCRIBING INFORMATION EVERY 4 WEEKS
     Route: 042
  2. ZOLOFT [Concomitant]
  3. ALLEGRA-D [Concomitant]
  4. VITAMIN D [Concomitant]

REACTIONS (1)
  - Rash [None]
